FAERS Safety Report 9337947 (Version 1)
Quarter: 2013Q2

REPORT INFORMATION
  Report Type: Spontaneous
  Country: US (occurrence: US)
  Receive Date: 20130609
  Receipt Date: 20130609
  Transmission Date: 20140414
  Serious: No
  Sender: FDA-Public Use
  Company Number: US-TEVA-407425USA

PATIENT
  Age: 76 Year
  Sex: Female
  Weight: 62.65 kg

DRUGS (14)
  1. QNASL [Suspect]
     Indication: UPPER-AIRWAY COUGH SYNDROME
     Dosage: 1 SPRAY IN EACH NOSTRIL TWICE DAILY
     Dates: start: 20130508
  2. QNASL [Suspect]
     Indication: HYPERSENSITIVITY
  3. VITAMIN C [Concomitant]
     Indication: VITAMIN SUPPLEMENTATION
  4. OMEPRAZOLE [Concomitant]
     Indication: GASTROOESOPHAGEAL REFLUX DISEASE
     Dosage: 40  DAILY;
     Route: 048
  5. LEVOCETIRIZINE [Concomitant]
     Indication: HYPERSENSITIVITY
     Dosage: 5 MILLIGRAM DAILY;
     Route: 048
  6. SIMVASTATIN [Concomitant]
     Indication: HYPERCHOLESTEROLAEMIA
     Dosage: 10 MILLIGRAM DAILY;
  7. SYNTHROID [Concomitant]
     Indication: HYPOTHYROIDISM
     Dosage: 75 MICROGRAM DAILY;
     Route: 048
  8. ASPIRIN [Concomitant]
     Indication: PROPHYLAXIS
     Dosage: 81 MILLIGRAM DAILY;
     Route: 048
  9. CALCIUM [Concomitant]
     Indication: MINERAL SUPPLEMENTATION
     Route: 048
  10. BIOTIN [Concomitant]
     Indication: NAIL DISORDER
     Route: 048
  11. BIOTIN [Concomitant]
     Indication: HAIR DISORDER
  12. LIPOFLAVONOID [Concomitant]
     Indication: SUPPLEMENTATION THERAPY
     Route: 048
  13. MIRALAX [Concomitant]
     Indication: CONSTIPATION
  14. MUCINEX [Concomitant]

REACTIONS (2)
  - Onychoclasis [Not Recovered/Not Resolved]
  - Inappropriate schedule of drug administration [Unknown]
